FAERS Safety Report 25797159 (Version 1)
Quarter: 2025Q3

REPORT INFORMATION
  Report Type: Report from Study
  Country: US (occurrence: US)
  Receive Date: 20250912
  Receipt Date: 20250912
  Transmission Date: 20251020
  Serious: Yes (Other)
  Sender: ABBVIE
  Company Number: US-ABBVIE-6439678

PATIENT
  Age: 68 Year
  Sex: Male

DRUGS (2)
  1. SKYRIZI [Suspect]
     Active Substance: RISANKIZUMAB-RZAA
     Indication: Crohn^s disease
     Route: 058
     Dates: start: 20250410
  2. SKYRIZI [Suspect]
     Active Substance: RISANKIZUMAB-RZAA
     Route: 058
     Dates: start: 20250430

REACTIONS (5)
  - Colostomy [Unknown]
  - Arthralgia [Not Recovered/Not Resolved]
  - Device issue [Unknown]
  - Frequent bowel movements [Unknown]
  - Arthritis [Unknown]

NARRATIVE: CASE EVENT DATE: 20250101
